FAERS Safety Report 6855971-0 (Version None)
Quarter: 2010Q3

REPORT INFORMATION
  Report Type: 
  Country: None (occurrence: None)
  Receive Date: 20100716
  Receipt Date: 20100716
  Transmission Date: 20110219
  Serious: Yes (Disabling)
  Sender: FDA-Public Use
  Company Number: None

PATIENT
  Sex: Female
  Weight: 61.2356 kg

DRUGS (1)
  1. LORATADINE [Suspect]
     Dosage: 10MG TABLET ONE DAILY ORAL
     Route: 048

REACTIONS (3)
  - THERMAL BURN [None]
  - TONGUE BLISTERING [None]
  - TONGUE DISORDER [None]
